FAERS Safety Report 5544115-3 (Version None)
Quarter: 2007Q4

REPORT INFORMATION
  Report Type: 
  Country: None (occurrence: None)
  Receive Date: 20071206
  Receipt Date: 20071121
  Transmission Date: 20080405
  Serious: Yes (Death)
  Sender: FDA-Public Use
  Company Number: 2007001879

PATIENT
  Age: 57 Year
  Sex: Male
  Weight: 75.7 kg

DRUGS (9)
  1. ERLOTINIB   /  UNBLINDED [Suspect]
     Indication: NON-SMALL CELL LUNG CANCER
     Dosage: (150 MG, QD), ORAL
     Route: 048
     Dates: start: 20070201
  2. BEVACIZUMAB               (INJECTION FOR INFUSION) [Suspect]
     Indication: NON-SMALL CELL LUNG CANCER
     Dosage: (1200 MG, Q3W), INTRAVENOUS
     Route: 042
     Dates: start: 20061108
  3. FENTANYL PATCH                  (FENTANYL CITRATE) [Concomitant]
  4. CELEBREX [Concomitant]
  5. SEROQUEL [Concomitant]
  6. WELLBUTRIN [Concomitant]
  7. METHADONE HCL [Concomitant]
  8. COMPAZINE          (PROCHLORPERAZINE EDISYLATE) [Concomitant]
  9. ACTIVAN               (LORAZEPAM) [Concomitant]

REACTIONS (2)
  - BLOOD GLUCOSE INCREASED [None]
  - SUDDEN DEATH [None]
